FAERS Safety Report 16057740 (Version 1)
Quarter: 2019Q1

REPORT INFORMATION
  Report Type: Spontaneous
  Country: US (occurrence: US)
  Receive Date: 20190311
  Receipt Date: 20190311
  Transmission Date: 20190418
  Serious: Yes (Other)
  Sender: FDA-Public Use
  Company Number: US-BAYER-2019-047935

PATIENT
  Age: 58 Year
  Sex: Female
  Weight: 79 kg

DRUGS (3)
  1. CORICIDIN HBP MAXIMUM STRENGTH FLU [Suspect]
     Active Substance: ACETAMINOPHEN\CHLORPHENIRAMINE MALEATE\DEXTROMETHORPHAN HYDROBROMIDE
     Indication: NASOPHARYNGITIS
  2. CORICIDIN HBP MAXIMUM STRENGTH FLU [Suspect]
     Active Substance: ACETAMINOPHEN\CHLORPHENIRAMINE MALEATE\DEXTROMETHORPHAN HYDROBROMIDE
     Indication: HYPERSENSITIVITY
     Dosage: 1 DF
     Route: 048
     Dates: start: 20190306
  3. TYLENOL [Suspect]
     Active Substance: ACETAMINOPHEN

REACTIONS (2)
  - Depressed level of consciousness [Recovered/Resolved]
  - Underdose [Unknown]

NARRATIVE: CASE EVENT DATE: 20190306
